FAERS Safety Report 7543314-9 (Version None)
Quarter: 2011Q2

REPORT INFORMATION
  Report Type: 
  Country: None (occurrence: None)
  Receive Date: 20110524
  Receipt Date: 20110216
  Transmission Date: 20111010
  Serious: No
  Sender: FDA-Public Use
  Company Number: 024331

PATIENT
  Sex: Female
  Weight: 74.8435 kg

DRUGS (1)
  1. CIMZIA [Suspect]
     Indication: CROHN'S DISEASE
     Dosage: 200 MG 1X/2 WEEKS SUBCUTANEOUS
     Route: 058
     Dates: start: 20101103

REACTIONS (5)
  - INJECTION SITE SWELLING [None]
  - SOMNOLENCE [None]
  - MENSTRUATION IRREGULAR [None]
  - NAUSEA [None]
  - PAIN [None]
